FAERS Safety Report 10622486 (Version 1)
Quarter: 2014Q4

REPORT INFORMATION
  Report Type: Spontaneous
  Country: US (occurrence: None)
  Receive Date: 20141201
  Receipt Date: 20141201
  Transmission Date: 20150529
  Serious: Yes (Life-Threatening, Hospitalization, Other)
  Sender: FDA-Public Use
  Company Number: None

PATIENT
  Age: 71 Year
  Sex: Male
  Weight: 125.7 kg

DRUGS (1)
  1. LISINOPRIL. [Suspect]
     Active Substance: LISINOPRIL
     Indication: CHRONIC KIDNEY DISEASE
     Route: 048
     Dates: start: 20020914, end: 20140814

REACTIONS (4)
  - Hyperkalaemia [None]
  - Acute kidney injury [None]
  - Thirst [None]
  - Hypophagia [None]

NARRATIVE: CASE EVENT DATE: 20140814
